FAERS Safety Report 7280219-5 (Version None)
Quarter: 2011Q1

REPORT INFORMATION
  Report Type: 
  Country: None (occurrence: None)
  Receive Date: 20110208
  Receipt Date: 20110128
  Transmission Date: 20110831
  Serious: Yes (Hospitalization)
  Sender: FDA-Public Use
  Company Number: US-ENDO PHARMACEUTICALS INC.-VALS20100163

PATIENT
  Sex: Male
  Weight: 90.8 kg

DRUGS (1)
  1. VALSTAR PRESERVATIVE FREE [Suspect]
     Dosage: 800 MG
     Route: 043

REACTIONS (1)
  - ARTHRALGIA [None]
